FAERS Safety Report 8211441-9 (Version None)
Quarter: 2012Q1

REPORT INFORMATION
  Report Type: 
  Country: None (occurrence: None)
  Receive Date: 20120315
  Receipt Date: 20120312
  Transmission Date: 20120608
  Serious: Yes (Other)
  Sender: FDA-Public Use
  Company Number: US-SANOFI-AVENTIS-2012SA008071

PATIENT
  Age: 70 Year
  Sex: Male
  Weight: 60 kg

DRUGS (10)
  1. PRAVASTATIN [Concomitant]
  2. ALL OTHER THERAPEUTIC PRODUCTS [Concomitant]
  3. ATENOLOL [Concomitant]
  4. VITAMIN B COMPLEX CAP [Concomitant]
  5. RANOLAZINE [Concomitant]
  6. PLAVIX [Suspect]
     Dosage: HE HAS BEEN ON CLOPIDOGREL FOR 20 YEARS
     Route: 048
  7. PLAVIX [Suspect]
     Dosage: HE HAS BEEN ON CLOPIDOGREL FOR 20 YEARS
     Route: 048
  8. HYDROCHLOROTHIAZIDE [Concomitant]
  9. IMDUR [Concomitant]
  10. FOLIC ACID [Concomitant]

REACTIONS (6)
  - DRUG INEFFECTIVE [None]
  - CONTUSION [None]
  - VASCULAR OCCLUSION [None]
  - CARDIAC DISORDER [None]
  - VISUAL ACUITY REDUCED [None]
  - HAEMORRHAGE [None]
